FAERS Safety Report 7124924-X (Version None)
Quarter: 2010Q4

REPORT INFORMATION
  Report Type: 
  Country: None (occurrence: None)
  Receive Date: 20101123
  Receipt Date: 20101123
  Transmission Date: 20110411
  Serious: No
  Sender: FDA-Public Use
  Company Number: None

PATIENT
  Age: 83 Year
  Sex: Male
  Weight: 65.7716 kg

DRUGS (2)
  1. ADVAIR DISKUS 250/50 [Suspect]
     Indication: CHRONIC OBSTRUCTIVE PULMONARY DISEASE
     Dosage: 1 INH TWICE A DAY STOPPED THIS DISKUS AFTER USE ON NOV 13 AND THERE ARE 16 LEFT ON THE COUNTER
  2. SPIRIVA [Concomitant]

REACTIONS (3)
  - FEELING HOT [None]
  - PRODUCT QUALITY ISSUE [None]
  - TINNITUS [None]
